FAERS Safety Report 20852281 (Version 2)
Quarter: 2022Q3

REPORT INFORMATION
  Report Type: Report from Study
  Country: US (occurrence: None)
  Receive Date: 20220520
  Receipt Date: 20220712
  Transmission Date: 20221026
  Serious: Yes (Other)
  Sender: FDA-Public Use
  Company Number: US-Merck Healthcare KGaA-9321348

PATIENT
  Sex: Male

DRUGS (1)
  1. REBIF [Suspect]
     Active Substance: INTERFERON BETA-1A
     Indication: Multiple sclerosis
     Dosage: REBIF PREFILLED SYRINGE
     Route: 058
     Dates: start: 20090314

REACTIONS (3)
  - Peripheral vascular disorder [Recovering/Resolving]
  - Vascular occlusion [Unknown]
  - Back pain [Unknown]
